FAERS Safety Report 19955042 (Version 1)
Quarter: 2021Q4

REPORT INFORMATION
  Report Type: Report from Study
  Country: CA (occurrence: CA)
  Receive Date: 20211013
  Receipt Date: 20211013
  Transmission Date: 20220304
  Serious: Yes (Hospitalization, Other)
  Sender: FDA-Public Use
  Company Number: CA-BAYER-2019-156098

PATIENT

DRUGS (3)
  1. EYLEA [Suspect]
     Active Substance: AFLIBERCEPT
     Indication: Diabetic retinal oedema
     Dosage: 2MG/50MCL
     Route: 031
     Dates: start: 20190717
  2. HUMALOG [Concomitant]
     Active Substance: INSULIN LISPRO
     Indication: Diabetes mellitus
     Dosage: UNK; INJECTION
  3. LANTUS [Concomitant]
     Active Substance: INSULIN GLARGINE
     Indication: Diabetes mellitus
     Dosage: UNK
     Route: 058

REACTIONS (6)
  - Incorrect product administration duration [Unknown]
  - COVID-19 [Unknown]
  - Visual impairment [Unknown]
  - Cataract [Unknown]
  - Intraocular pressure increased [Unknown]
  - Scar [Unknown]

NARRATIVE: CASE EVENT DATE: 20200904
